FAERS Safety Report 8380896-1 (Version None)
Quarter: 2012Q2

REPORT INFORMATION
  Report Type: 
  Country: None (occurrence: None)
  Receive Date: 20120523
  Receipt Date: 20120515
  Transmission Date: 20120825
  Serious: Yes (Hospitalization)
  Sender: FDA-Public Use
  Company Number: US-MERCK-1204USA02729

PATIENT
  Age: 61 Year
  Sex: Female
  Weight: 106 kg

DRUGS (17)
  1. ASPIRIN [Concomitant]
     Route: 065
  2. HUMALOG MIX 75/25 [Concomitant]
     Route: 051
  3. JANUVIA [Suspect]
     Indication: TYPE 2 DIABETES MELLITUS
     Route: 048
     Dates: end: 20120405
  4. VICTOZA [Suspect]
     Route: 065
     Dates: end: 20120405
  5. VITAMINS (UNSPECIFIED) [Concomitant]
     Route: 065
  6. OMEGA-3 MARINE TRIGLYCERIDES [Concomitant]
     Route: 065
  7. DIOVAN [Concomitant]
     Route: 048
  8. GLIMEPIRIDE [Concomitant]
     Route: 065
  9. VITAMIN B COMPLEX [Concomitant]
     Route: 065
  10. HUMALOG MIX 75/25 [Concomitant]
     Indication: DIABETES MELLITUS
     Route: 051
  11. SIMVASTATIN [Concomitant]
     Route: 048
  12. VITAMIN B COMPLEX [Concomitant]
     Route: 065
  13. VITAMIN D (UNSPECIFIED) [Concomitant]
     Route: 065
  14. GEMFIBROZIL [Concomitant]
     Route: 048
  15. DOXYCYCLINE [Concomitant]
     Route: 048
  16. ATENOLOL [Concomitant]
     Route: 048
  17. HYDROCHLOROTHIAZIDE [Concomitant]
     Route: 048

REACTIONS (5)
  - PANCREATITIS [None]
  - UPPER RESPIRATORY TRACT INFECTION [None]
  - DIARRHOEA [None]
  - HYPOTENSION [None]
  - LEUKOCYTOSIS [None]
